FAERS Safety Report 4952696-3 (Version None)
Quarter: 2006Q1

REPORT INFORMATION
  Report Type: 
  Country: None (occurrence: None)
  Receive Date: 20060321
  Receipt Date: 20060306
  Transmission Date: 20060701
  Serious: Yes (Death)
  Sender: FDA-Public Use
  Company Number: 2006-DE-01234GD

PATIENT
  Sex: 0

DRUGS (4)
  1. MORPHINE [Suspect]
     Indication: BREAKTHROUGH PAIN
     Dosage: IT
     Route: 037
  2. MORPHINE [Suspect]
     Indication: CANCER PAIN
     Dosage: IT
     Route: 037
  3. LEVOBUPIVACAINE (LEVOBUPIVACAINE) [Suspect]
     Indication: BREAKTHROUGH PAIN
     Dosage: IT
     Route: 037
  4. LEVOBUPIVACAINE (LEVOBUPIVACAINE) [Suspect]
     Indication: CANCER PAIN
     Dosage: IT
     Route: 037

REACTIONS (2)
  - ASTHENIA [None]
  - DYSURIA [None]
